FAERS Safety Report 7939728-5 (Version None)
Quarter: 2011Q4

REPORT INFORMATION
  Report Type: 
  Country: None (occurrence: None)
  Receive Date: 20111125
  Receipt Date: 20111118
  Transmission Date: 20120403
  Serious: Yes (Hospitalization, Other)
  Sender: FDA-Public Use
  Company Number: PHEH2009US13099

PATIENT
  Sex: Female
  Weight: 56 kg

DRUGS (3)
  1. PENICILLIN VK [Concomitant]
     Indication: PROPHYLAXIS
     Dosage: 250 MG, TWICE A DAY
     Route: 048
     Dates: start: 19960201
  2. EXJADE [Suspect]
     Dosage: 2000 MG, QD
     Route: 048
     Dates: start: 20090720, end: 20090911
  3. EXJADE [Suspect]
     Indication: BLOOD PRODUCT TRANSFUSION DEPENDENT
     Dosage: 2000 MG, QD
     Route: 048
     Dates: start: 20060421

REACTIONS (12)
  - DIARRHOEA [None]
  - PAIN [None]
  - BLOOD AMYLASE INCREASED [None]
  - VOMITING [None]
  - CHOLECYSTITIS [None]
  - DRUG ADMINISTRATION ERROR [None]
  - ABDOMINAL PAIN [None]
  - CHOLELITHIASIS [None]
  - GASTROENTERITIS [None]
  - EATING DISORDER [None]
  - LIVER FUNCTION TEST ABNORMAL [None]
  - DEHYDRATION [None]
